FAERS Safety Report 19041855 (Version 1)
Quarter: 2021Q1

REPORT INFORMATION
  Report Type: Spontaneous
  Country: US (occurrence: US)
  Receive Date: 20210323
  Receipt Date: 20210323
  Transmission Date: 20210420
  Serious: No
  Sender: FDA-Public Use
  Company Number: US-SA-2021SA097004

PATIENT
  Sex: Female

DRUGS (4)
  1. BENADRYL [Concomitant]
     Active Substance: DIPHENHYDRAMINE HYDROCHLORIDE
  2. KEVZARA [Suspect]
     Active Substance: SARILUMAB
     Indication: RHEUMATOID ARTHRITIS
     Dosage: 200 MG, QOW
     Route: 058
  3. KEVZARA [Suspect]
     Active Substance: SARILUMAB
     Indication: RHEUMATOID FACTOR
  4. ENBREL [Suspect]
     Active Substance: ETANERCEPT

REACTIONS (8)
  - Injection site pruritus [Unknown]
  - Injection site urticaria [Unknown]
  - Injection site swelling [Recovering/Resolving]
  - Condition aggravated [Unknown]
  - Feeling hot [Unknown]
  - Joint warmth [Unknown]
  - Injection site erythema [Unknown]
  - Injection site warmth [Unknown]
